FAERS Safety Report 8578839-0 (Version None)
Quarter: 2012Q3

REPORT INFORMATION
  Report Type: 
  Country: None (occurrence: None)
  Receive Date: 20120808
  Receipt Date: 20120804
  Transmission Date: 20120928
  Serious: Yes (Other)
  Sender: FDA-Public Use
  Company Number: PHHY2012MX068169

PATIENT
  Sex: Female

DRUGS (4)
  1. DIOVAN HCT [Suspect]
     Indication: HYPERTENSION
     Dosage: 2 TABLETS (160/12.5 MG) DAILY
     Route: 048
     Dates: start: 20100901, end: 20120804
  2. ESTRIOL [Concomitant]
     Dosage: TWO WEEKLY
  3. ERGOCALCIFEROL [Concomitant]
     Dosage: 1 DAILY
  4. BIOGROTAL [Concomitant]
     Dosage: 1 DAILY

REACTIONS (3)
  - ROAD TRAFFIC ACCIDENT [None]
  - PAIN [None]
  - INJURY [None]
